APPROVED DRUG PRODUCT: DESOXIMETASONE
Active Ingredient: DESOXIMETASONE
Strength: 0.25%
Dosage Form/Route: CREAM;TOPICAL
Application: A203234 | Product #001
Applicant: SCIEGEN PHARMACEUTICALS INC
Approved: Jun 12, 2015 | RLD: No | RS: No | Type: DISCN